FAERS Safety Report 10993201 (Version 2)
Quarter: 2016Q3

REPORT INFORMATION
  Report Type: Report from Study
  Country: FR (occurrence: FR)
  Receive Date: 20150407
  Receipt Date: 20160921
  Transmission Date: 20161109
  Serious: Yes (Hospitalization)
  Sender: FDA-Public Use
  Company Number: FR-ROCHE-1164279

PATIENT
  Age: 79 Year
  Sex: Male

DRUGS (8)
  1. CORTANCYL [Concomitant]
     Active Substance: PREDNISONE
     Route: 065
  2. RITUXIMAB [Suspect]
     Active Substance: RITUXIMAB
     Route: 042
     Dates: start: 20100504
  3. RITUXIMAB [Suspect]
     Active Substance: RITUXIMAB
     Route: 042
     Dates: start: 20080807
  4. RITUXIMAB [Suspect]
     Active Substance: RITUXIMAB
     Route: 042
     Dates: start: 20110603, end: 20120613
  5. CORTANCYL [Concomitant]
     Active Substance: PREDNISONE
     Route: 065
  6. RITUXIMAB [Suspect]
     Active Substance: RITUXIMAB
     Indication: RHEUMATOID ARTHRITIS
     Route: 042
     Dates: start: 20080724
  7. RITUXIMAB [Suspect]
     Active Substance: RITUXIMAB
     Route: 042
     Dates: start: 20100421
  8. CORTANCYL [Concomitant]
     Active Substance: PREDNISONE
     Route: 065

REACTIONS (9)
  - Cardiac failure [Recovered/Resolved]
  - Gastrointestinal disorder [Recovered/Resolved]
  - Prostatitis Escherichia coli [Unknown]
  - Prostatitis [Unknown]
  - Crohn^s disease [Unknown]
  - Arthralgia [Recovered/Resolved]
  - Genitourinary tract infection [Recovered/Resolved]
  - Infarction [Unknown]
  - Urinary bladder abscess [Unknown]

NARRATIVE: CASE EVENT DATE: 20110405
